FAERS Safety Report 23647554 (Version 1)
Quarter: 2024Q1

REPORT INFORMATION
  Report Type: Spontaneous
  Country: US (occurrence: None)
  Receive Date: 20240318
  Receipt Date: 20240318
  Transmission Date: 20240410
  Serious: No
  Sender: FDA-Public Use
  Company Number: None

PATIENT
  Sex: 0

DRUGS (1)
  1. IMBRUVICA [Suspect]
     Active Substance: IBRUTINIB

REACTIONS (6)
  - Lymphadenopathy [None]
  - Condition aggravated [None]
  - Fatigue [None]
  - Cytopenia [None]
  - Haemorrhage [None]
  - Therapy cessation [None]
